FAERS Safety Report 4492733-6 (Version None)
Quarter: 2004Q4

REPORT INFORMATION
  Report Type: 
  Country: None (occurrence: None)
  Receive Date: 20041104
  Receipt Date: 20040326
  Transmission Date: 20050328
  Serious: Yes (Death, Hospitalization, Other)
  Sender: FDA-Public Use
  Company Number: US-AMGEN-US070791

PATIENT
  Sex: Female

DRUGS (1)
  1. EPOGEN [Suspect]
     Indication: PRE-EXISTING DISEASE
     Route: 058
     Dates: start: 20010101, end: 20040324

REACTIONS (6)
  - ANTI-ERYTHROCYTE ANTIBODY [None]
  - CARDIAC DEATH [None]
  - CHILLS [None]
  - COOMBS TEST POSITIVE [None]
  - THERAPEUTIC RESPONSE DECREASED [None]
  - TRANSFUSION REACTION [None]
